FAERS Safety Report 5978117-X (Version None)
Quarter: 2008Q4

REPORT INFORMATION
  Report Type: 
  Country: None (occurrence: None)
  Receive Date: 20081126
  Receipt Date: 20081118
  Transmission Date: 20090506
  Serious: Yes (Death)
  Sender: FDA-Public Use
  Company Number: 2008AL011145

PATIENT
  Age: 89 Year
  Sex: Male
  Weight: 59.8748 kg

DRUGS (4)
  1. DIGOXIN [Suspect]
     Indication: CARDIAC FAILURE CONGESTIVE
     Dosage: 0.125MG, , PO
     Route: 048
     Dates: start: 20050301, end: 20080601
  2. QUINAPRIL [Concomitant]
  3. PACERONE [Concomitant]
  4. FUROSEMIDE [Concomitant]

REACTIONS (2)
  - CEREBROVASCULAR ACCIDENT [None]
  - HERPES ZOSTER [None]
